FAERS Safety Report 6480767-1 (Version None)
Quarter: 2009Q4

REPORT INFORMATION
  Report Type: 
  Country: None (occurrence: None)
  Receive Date: 20091208
  Receipt Date: 20091126
  Transmission Date: 20100525
  Serious: Yes (Other)
  Sender: FDA-Public Use
  Company Number: ES-JNJFOC-20091201493

PATIENT
  Age: 69 Year
  Sex: Female

DRUGS (1)
  1. REMICADE [Suspect]
     Indication: RHEUMATOID ARTHRITIS
     Dosage: DOSE AMOUNT NOT REPORTED
     Route: 042
     Dates: start: 20050119, end: 20081126

REACTIONS (4)
  - ASTHENIA [None]
  - BRONCHIOLITIS [None]
  - BRONCHITIS [None]
  - LUNG INFECTION PSEUDOMONAL [None]
